FAERS Safety Report 12369414 (Version 1)
Quarter: 2016Q2

REPORT INFORMATION
  Report Type: Spontaneous
  Country: US (occurrence: None)
  Receive Date: 20160513
  Receipt Date: 20160513
  Transmission Date: 20160815
  Serious: Yes (Disabling)
  Sender: FDA-Public Use
  Company Number: None

PATIENT
  Age: 26 Year
  Sex: Female
  Weight: 90.72 kg

DRUGS (1)
  1. SUBOXONE [Suspect]
     Active Substance: BUPRENORPHINE HYDROCHLORIDE\NALOXONE HYDROCHLORIDE
     Indication: DRUG DEPENDENCE
     Dosage: IN THE MORNING TAKEN UNDER THE TONGUE
     Route: 060

REACTIONS (8)
  - Oral mucosal exfoliation [None]
  - Pharyngeal oedema [None]
  - Stomatitis [None]
  - Candida infection [None]
  - Coating in mouth [None]
  - Glossodynia [None]
  - Swollen tongue [None]
  - Salivary gland enlargement [None]
